FAERS Safety Report 5426766-X (Version None)
Quarter: 2007Q3

REPORT INFORMATION
  Report Type: 
  Country: None (occurrence: None)
  Receive Date: 20070731
  Receipt Date: 20070509
  Transmission Date: 20080115
  Serious: No
  Sender: FDA-Public Use
  Company Number: 2007PV032561

PATIENT
  Age: 54 Year
  Sex: Female

DRUGS (6)
  1. EXENATIDE(EXENATIDE) PEN,DISPOSABLE [Suspect]
     Indication: TYPE 2 DIABETES MELLITUS
     Dosage: 10 UG, 2/D, SUBCUTANEOUS 5UG, 2/D 10 UG, 2/D 5 UG, 2/D
     Route: 058
     Dates: start: 20070201, end: 20070327
  2. EXENATIDE(EXENATIDE) PEN,DISPOSABLE [Suspect]
     Indication: TYPE 2 DIABETES MELLITUS
     Dosage: 10 UG, 2/D, SUBCUTANEOUS 5UG, 2/D 10 UG, 2/D 5 UG, 2/D
     Route: 058
     Dates: start: 20070301, end: 20070401
  3. EXENATIDE(EXENATIDE) PEN,DISPOSABLE [Suspect]
     Indication: TYPE 2 DIABETES MELLITUS
     Dosage: 10 UG, 2/D, SUBCUTANEOUS 5UG, 2/D 10 UG, 2/D 5 UG, 2/D
     Route: 058
     Dates: start: 20070328
  4. EXENATIDE(EXENATIDE) PEN,DISPOSABLE [Suspect]
     Indication: TYPE 2 DIABETES MELLITUS
     Dosage: 10 UG, 2/D, SUBCUTANEOUS 5UG, 2/D 10 UG, 2/D 5 UG, 2/D
     Route: 058
     Dates: start: 20070401
  5. EXENATIDE [Concomitant]
  6. GLIPIZIDE [Concomitant]

REACTIONS (4)
  - BLOOD GLUCOSE INCREASED [None]
  - DIARRHOEA [None]
  - RETCHING [None]
  - VOMITING [None]
